FAERS Safety Report 6600850-7 (Version None)
Quarter: 2010Q1

REPORT INFORMATION
  Report Type: 
  Country: None (occurrence: None)
  Receive Date: 20100225
  Receipt Date: 20100218
  Transmission Date: 20100710
  Serious: Yes (Hospitalization)
  Sender: FDA-Public Use
  Company Number: BR-WYE-H13732010

PATIENT
  Sex: Female
  Weight: 76 kg

DRUGS (2)
  1. TEMSIROLIMUS [Suspect]
     Indication: RENAL CELL CARCINOMA
     Route: 042
     Dates: start: 20091229, end: 20100217
  2. BEVACIZUMAB [Suspect]
     Indication: RENAL CELL CARCINOMA
     Route: 042
     Dates: start: 20091229, end: 20100217

REACTIONS (2)
  - HYPERGLYCAEMIA [None]
  - TYPE 2 DIABETES MELLITUS [None]
